FAERS Safety Report 19681544 (Version 1)
Quarter: 2021Q3

REPORT INFORMATION
  Report Type: Other
  Country: US (occurrence: US)
  Receive Date: 20210810
  Receipt Date: 20210810
  Transmission Date: 20211014
  Serious: Yes (Other)
  Sender: FDA-Public Use
  Company Number: US-ROCHE-2879726

PATIENT
  Sex: Female

DRUGS (2)
  1. ACTEMRA [Suspect]
     Active Substance: TOCILIZUMAB
  2. ACTEMRA [Suspect]
     Active Substance: TOCILIZUMAB
     Indication: RHEUMATOID ARTHRITIS
     Dosage: INJECT 162MG (0.9ML) SUBCUTANEOUSLY EVERY WEEK
     Route: 058

REACTIONS (12)
  - Fall [Unknown]
  - Type 2 diabetes mellitus [Unknown]
  - Tinnitus [Unknown]
  - Arthralgia [Unknown]
  - Gastric disorder [Unknown]
  - Depression [Unknown]
  - Rheumatoid arthritis [Unknown]
  - Injection site bruising [Unknown]
  - Mobility decreased [Unknown]
  - Gastric ulcer [Unknown]
  - Joint swelling [Unknown]
  - Deafness unilateral [Unknown]
